FAERS Safety Report 13505850 (Version 1)
Quarter: 2017Q2

REPORT INFORMATION
  Report Type: Spontaneous
  Country: US (occurrence: US)
  Receive Date: 20170502
  Receipt Date: 20170502
  Transmission Date: 20170830
  Serious: No
  Sender: FDA-Public Use
  Company Number: US-ROCHE-1373311

PATIENT
  Sex: Male

DRUGS (2)
  1. TEMODAR [Concomitant]
     Active Substance: TEMOZOLOMIDE
     Indication: GLIOBLASTOMA MULTIFORME
     Dosage: 17 CYCLES RECIEVED
     Route: 065
  2. AVASTIN [Suspect]
     Active Substance: BEVACIZUMAB
     Indication: GLIOBLASTOMA MULTIFORME
     Dosage: 17 CYCLES RECEIVED
     Route: 065

REACTIONS (1)
  - Pruritus [Unknown]
